FAERS Safety Report 9492511 (Version 5)
Quarter: 2014Q1

REPORT INFORMATION
  Report Type: Report from Study
  Country: SK (occurrence: SK)
  Receive Date: 20130830
  Receipt Date: 20140116
  Transmission Date: 20141002
  Serious: Yes (Hospitalization, Other)
  Sender: FDA-Public Use
  Company Number: SK-ASTRAZENECA-2013SE65813

PATIENT
  Age: 30287 Day
  Sex: Male

DRUGS (8)
  1. ANOPYRIN [Suspect]
     Route: 048
     Dates: end: 20130731
  2. AZD6140 [Suspect]
     Indication: CORONARY ARTERY DISEASE
     Route: 048
     Dates: start: 20110617, end: 20130730
  3. CONCOR COR [Concomitant]
     Indication: MYOCARDIAL ISCHAEMIA
     Route: 048
  4. GOPTEN [Concomitant]
     Indication: HYPERTENSION
     Route: 048
  5. SIMGAL [Concomitant]
     Indication: DYSLIPIDAEMIA
     Route: 048
  6. NITROGLYCERIN [Concomitant]
     Indication: MYOCARDIAL ISCHAEMIA
     Route: 048
  7. FRAXIPARINE [Concomitant]
     Indication: MYOCARDIAL ISCHAEMIA
     Route: 058
     Dates: start: 20130730
  8. LUCETAM [Concomitant]
     Indication: POST-TRAUMATIC HEADACHE
     Route: 048

REACTIONS (1)
  - Haemorrhagic erosive gastritis [Recovered/Resolved]
